FAERS Safety Report 15924222 (Version 3)
Quarter: 2019Q1

REPORT INFORMATION
  Report Type: Report from Study
  Country: US (occurrence: US)
  Receive Date: 20190205
  Receipt Date: 20190227
  Transmission Date: 20190417
  Serious: Yes (Hospitalization)
  Sender: FDA-Public Use
  Company Number: US-ACTELION-A-NJ2019-185762

PATIENT
  Age: 2 Year
  Sex: Male

DRUGS (7)
  1. REVATIO [Concomitant]
     Active Substance: SILDENAFIL CITRATE
     Dosage: 10 MG, TID
  2. RANITIDINE. [Concomitant]
     Active Substance: RANITIDINE
     Dosage: 45 MG, UNK
  3. TRACLEER [Suspect]
     Active Substance: BOSENTAN
     Dosage: 20 MG, BID
     Route: 048
  4. LEVOTHYROXINE. [Concomitant]
     Active Substance: LEVOTHYROXINE
     Dosage: 4 MCG, QD
  5. TRACLEER [Suspect]
     Active Substance: BOSENTAN
     Indication: PULMONARY HYPERTENSION
     Dosage: 62.5 MG, BID
     Route: 048
     Dates: start: 201707, end: 20190119
  6. DIURIL [Concomitant]
     Active Substance: CHLOROTHIAZIDE
     Dosage: 12 MG, UNK
  7. LANSOPRAZOLE. [Concomitant]
     Active Substance: LANSOPRAZOLE
     Dosage: 12 MG, QD

REACTIONS (8)
  - Congenital cardiovascular anomaly repair [Unknown]
  - Pseudomonas test positive [Not Recovered/Not Resolved]
  - Bacterial tracheitis [Not Recovered/Not Resolved]
  - Alanine aminotransferase increased [Recovered/Resolved]
  - Respiratory syncytial virus infection [Not Recovered/Not Resolved]
  - Blood bilirubin increased [Recovered/Resolved]
  - Hepatitis acute [Recovered/Resolved]
  - Aspartate aminotransferase increased [Recovered/Resolved]

NARRATIVE: CASE EVENT DATE: 20190116
